FAERS Safety Report 4286624-3 (Version None)
Quarter: 2004Q1

REPORT INFORMATION
  Report Type: 
  Country: None (occurrence: None)
  Receive Date: 20040206
  Receipt Date: 20040128
  Transmission Date: 20041129
  Serious: Yes (Other)
  Sender: FDA-Public Use
  Company Number: PHBS2004SE01431

PATIENT
  Sex: Male

DRUGS (1)
  1. MALLOROL [Suspect]
     Indication: SLEEP DISORDER
     Dosage: 25 MG/D
     Route: 048

REACTIONS (1)
  - GLAUCOMA [None]
